FAERS Safety Report 5872899-3 (Version None)
Quarter: 2008Q3

REPORT INFORMATION
  Report Type: 
  Country: None (occurrence: None)
  Receive Date: 20080905
  Receipt Date: 20080827
  Transmission Date: 20090109
  Serious: Yes (Other)
  Sender: FDA-Public Use
  Company Number: NL-PFIZER INC-2008066768

PATIENT
  Sex: Male
  Weight: 77 kg

DRUGS (5)
  1. LIPITOR [Suspect]
     Route: 048
  2. NORVASC [Suspect]
     Route: 048
     Dates: start: 20080410, end: 20080813
  3. SELOKEEN [Concomitant]
  4. DIOVAN HCT [Concomitant]
  5. ACENOCOUMAROL [Concomitant]

REACTIONS (5)
  - ATRIAL FIBRILLATION [None]
  - CHEST DISCOMFORT [None]
  - FATIGUE [None]
  - RASH [None]
  - SLEEP APNOEA SYNDROME [None]
